FAERS Safety Report 7295632-X (Version None)
Quarter: 2011Q1

REPORT INFORMATION
  Report Type: 
  Country: None (occurrence: None)
  Receive Date: 20110216
  Receipt Date: 20101229
  Transmission Date: 20110831
  Serious: No
  Sender: FDA-Public Use
  Company Number: US-ABBOTT-10P-163-0694305-00

PATIENT
  Sex: Female
  Weight: 119.4 kg

DRUGS (2)
  1. SIMCOR [Suspect]
     Indication: HYPERLIPIDAEMIA
     Dates: start: 20101201
  2. BLOOD PRESSURE MEDICATION [Concomitant]
     Indication: BLOOD PRESSURE

REACTIONS (4)
  - BURNING SENSATION [None]
  - FLUSHING [None]
  - FEELING HOT [None]
  - ERYTHEMA [None]
